FAERS Safety Report 9632246 (Version 2)
Quarter: 2013Q4

REPORT INFORMATION
  Report Type: Spontaneous
  Country: US (occurrence: US)
  Receive Date: 20131018
  Receipt Date: 20131203
  Transmission Date: 20140711
  Serious: Yes (Hospitalization, Other)
  Sender: FDA-Public Use
  Company Number: US-BAYER-2013-124283

PATIENT
  Age: 30 Year
  Sex: Female
  Weight: 73.02 kg

DRUGS (11)
  1. YAZ [Suspect]
  2. YASMIN [Suspect]
     Dosage: UNK
     Dates: start: 20050314
  3. PROMETHAZINE [Concomitant]
     Dosage: UNK
     Dates: start: 20060221
  4. ZOMIG [Concomitant]
     Dosage: UNK
     Dates: start: 20060306
  5. PROTONIX [Concomitant]
     Dosage: UNK
     Dates: start: 20060306
  6. CARAFATE [Concomitant]
     Dosage: UNK
     Dates: start: 20060307
  7. PERCOCET [Concomitant]
     Dosage: UNK
     Dates: start: 20060307
  8. NUTREX [Concomitant]
     Dosage: UNK
     Dates: start: 20060307
  9. VICODIN [Concomitant]
     Dosage: UNK
     Dates: start: 20060317
  10. LORTAB [Concomitant]
     Dosage: UNK
     Dates: start: 20060317
  11. PHENERGAN [Concomitant]

REACTIONS (8)
  - Pelvic venous thrombosis [None]
  - Cholecystitis chronic [None]
  - Injury [None]
  - Pain [None]
  - General physical health deterioration [None]
  - Emotional distress [None]
  - Anxiety [None]
  - Pain [None]
